FAERS Safety Report 9605913 (Version 1)
Quarter: 2013Q4

REPORT INFORMATION
  Report Type: Spontaneous
  Country: GB (occurrence: GB)
  Receive Date: 20131008
  Receipt Date: 20131008
  Transmission Date: 20140711
  Serious: Yes (Other)
  Sender: FDA-Public Use
  Company Number: PHHY2013GB109737

PATIENT
  Age: 77 Year
  Sex: Male
  Weight: 101.6 kg

DRUGS (7)
  1. RAMIPRIL [Suspect]
     Dosage: 5 MG, QD (DOSE DOUBLED TO 10MG FOLLOWING TESTS)
     Route: 048
  2. RAMIPRIL [Suspect]
     Dosage: 10 MG, QD (DOSE REDUCED TO 5MG FOLLOWING A FURTHER DOCTOR VISIT)
     Route: 048
  3. RAMIPRIL [Suspect]
     Dosage: 5 MG, QD
     Route: 048
  4. VIAZEM XL [Suspect]
  5. DIURETICS [Suspect]
  6. SYMBICORT [Concomitant]
     Indication: BRONCHIECTASIS
  7. VENTOLINE [Concomitant]
     Indication: BRONCHIECTASIS

REACTIONS (4)
  - Pallor [Unknown]
  - Pulse abnormal [Unknown]
  - Dizziness [Recovering/Resolving]
  - Muscle spasms [Recovered/Resolved]
